FAERS Safety Report 14295495 (Version 1)
Quarter: 2017Q4

REPORT INFORMATION
  Report Type: Spontaneous
  Country: US (occurrence: US)
  Receive Date: 20171215
  Receipt Date: 20171215
  Transmission Date: 20180321
  Serious: No
  Sender: FDA-Public Use
  Company Number: None

PATIENT
  Age: 63 Year
  Sex: Female
  Weight: 58.3 kg

DRUGS (3)
  1. LEUCOVORIN CALCIUM. [Suspect]
     Active Substance: LEUCOVORIN CALCIUM
     Dates: end: 20171127
  2. ELOXATIN [Suspect]
     Active Substance: OXALIPLATIN
     Dates: end: 20171127
  3. 5-FLUOROURACIL (5-FU) [Suspect]
     Active Substance: FLUOROURACIL
     Dates: end: 20171127

REACTIONS (5)
  - Swollen tongue [None]
  - Eye swelling [None]
  - Swelling face [None]
  - Lip swelling [None]
  - Speech disorder [None]

NARRATIVE: CASE EVENT DATE: 20171129
